FAERS Safety Report 19503045 (Version 1)
Quarter: 2021Q3

REPORT INFORMATION
  Report Type: Spontaneous
  Country: US (occurrence: US)
  Receive Date: 20210707
  Receipt Date: 20210707
  Transmission Date: 20211014
  Serious: Yes (Life-Threatening, Other)
  Sender: FDA-Public Use
  Company Number: US-PFIZER INC-2021793583

PATIENT
  Age: 69 Year
  Sex: Male

DRUGS (2)
  1. HEPARIN SODIUM. [Suspect]
     Active Substance: HEPARIN SODIUM
     Indication: LACTIC ACIDOSIS
  2. HEPARIN SODIUM. [Suspect]
     Active Substance: HEPARIN SODIUM
     Indication: COVID-19 PNEUMONIA
     Dosage: UNK

REACTIONS (4)
  - Shock [Recovered/Resolved]
  - Haemorrhagic cholecystitis [Recovered/Resolved]
  - Off label use [Unknown]
  - Haemorrhage [Recovered/Resolved]
